FAERS Safety Report 23506932 (Version 1)
Quarter: 2024Q1

REPORT INFORMATION
  Report Type: Spontaneous
  Country: MY (occurrence: MY)
  Receive Date: 20240209
  Receipt Date: 20240209
  Transmission Date: 20240410
  Serious: Yes (Hospitalization)
  Sender: FDA-Public Use
  Company Number: MY-MYLANLABS-2024M1012920

PATIENT
  Age: 48 Year
  Sex: Male

DRUGS (4)
  1. VANCOMYCIN [Suspect]
     Active Substance: VANCOMYCIN
     Indication: Peritonitis bacterial
     Dosage: 1.75 GRAM [LOADING DOSE (30?MG/KG) AND INTERMITTENT DOSE WAS CONTINUED AS PER THE DRUG LEVEL]
     Route: 033
  2. VANCOMYCIN [Suspect]
     Active Substance: VANCOMYCIN
     Indication: Staphylococcal infection
  3. CEFTAZIDIME [Concomitant]
     Active Substance: CEFTAZIDIME
     Indication: Evidence based treatment
     Dosage: UNK
     Route: 033
  4. CLOXACILLIN [Concomitant]
     Active Substance: CLOXACILLIN
     Indication: Evidence based treatment
     Dosage: UNK
     Route: 033

REACTIONS (1)
  - Type IV hypersensitivity reaction [Recovered/Resolved with Sequelae]
